FAERS Safety Report 12381455 (Version 2)
Quarter: 2016Q2

REPORT INFORMATION
  Report Type: Spontaneous
  Country: FR (occurrence: FR)
  Receive Date: 20160518
  Receipt Date: 20160606
  Transmission Date: 20160815
  Serious: Yes (Death)
  Sender: FDA-Public Use
  Company Number: FR-SA-2016SA094735

PATIENT
  Age: 68 Year
  Sex: Male

DRUGS (5)
  1. DAFALGAN [Concomitant]
     Active Substance: ACETAMINOPHEN
     Dates: start: 20160506, end: 20160507
  2. PANTOPRAZOLE [Concomitant]
     Active Substance: PANTOPRAZOLE SODIUM
     Dates: start: 20160425, end: 20160507
  3. LOVENOX [Suspect]
     Active Substance: ENOXAPARIN SODIUM
     Indication: PROPHYLAXIS
     Route: 065
     Dates: start: 20160503, end: 20160507
  4. PROFENID [Suspect]
     Active Substance: KETOPROFEN
     Indication: HEADACHE
     Route: 065
     Dates: start: 20160503, end: 20160507
  5. ATARAX [Concomitant]
     Active Substance: HYDROXYZINE\HYDROXYZINE HYDROCHLORIDE
     Dates: start: 20160504, end: 20160507

REACTIONS (5)
  - Brain oedema [Fatal]
  - Cerebral haemorrhage [Fatal]
  - Subdural haematoma [Fatal]
  - Coma [Fatal]
  - Brain stem haematoma [Fatal]

NARRATIVE: CASE EVENT DATE: 20160507
